FAERS Safety Report 8945453 (Version 2)
Quarter: 2012Q4

REPORT INFORMATION
  Report Type: 
  Country: JP (occurrence: JP)
  Receive Date: 20121205
  Receipt Date: 20121220
  Transmission Date: 20130627
  Serious: Yes (Other)
  Sender: FDA-Public Use
  Company Number: JP-PFIZER INC-2012302513

PATIENT
  Age: 72 Year
  Sex: Male

DRUGS (1)
  1. GABAPEN [Suspect]
     Indication: NEUROGENIC PAIN
     Dosage: 1200 mg, daily
     Route: 048

REACTIONS (3)
  - White blood cell count decreased [Unknown]
  - Haemoglobin decreased [Unknown]
  - Platelet count decreased [Unknown]
